FAERS Safety Report 9863747 (Version 4)
Quarter: 2014Q2

REPORT INFORMATION
  Report Type: Report from Study
  Country: US (occurrence: US)
  Receive Date: 20140203
  Receipt Date: 20140411
  Transmission Date: 20141212
  Serious: Yes (Hospitalization)
  Sender: FDA-Public Use
  Company Number: US-NAPPMUNDI-USA-2014-0110716

PATIENT
  Age: 44 Year
  Sex: Male

DRUGS (2)
  1. OXY CR TAB [Suspect]
     Indication: RADICULAR PAIN
     Dosage: 6, 80 MG TABLETS Q12H TO EQUAL 480 MG, Q12H
     Route: 048
     Dates: start: 20140128, end: 20140314
  2. OXY CR TAB [Suspect]
     Indication: ARTHRALGIA

REACTIONS (5)
  - H1N1 influenza [Recovered/Resolved]
  - Cholecystectomy [Recovered/Resolved]
  - Nausea [Recovered/Resolved]
  - Vomiting [Recovered/Resolved]
  - Drug tolerance [Recovered/Resolved]
